FAERS Safety Report 7913725-8 (Version None)
Quarter: 2011Q4

REPORT INFORMATION
  Report Type: 
  Country: None (occurrence: None)
  Receive Date: 20111115
  Receipt Date: 20111107
  Transmission Date: 20120403
  Serious: Yes (Hospitalization, Other)
  Sender: FDA-Public Use
  Company Number: HR-JNJFOC-20111104674

PATIENT
  Sex: Female

DRUGS (7)
  1. RISPERIDONE [Suspect]
     Indication: ACUTE PSYCHOSIS
     Route: 048
     Dates: start: 20070101, end: 20070101
  2. RISPERIDONE [Suspect]
     Route: 030
     Dates: start: 20081201, end: 20110701
  3. DIAZEPAM [Concomitant]
  4. RISPERIDONE [Concomitant]
  5. HALDOL [Concomitant]
  6. RISPERIDONE [Suspect]
     Indication: ACUTE PSYCHOSIS
     Route: 030
     Dates: start: 20070101, end: 20081201
  7. RISPERIDONE [Suspect]
     Route: 048
     Dates: start: 20070101, end: 20080101

REACTIONS (2)
  - PSYCHOTIC DISORDER [None]
  - TREATMENT NONCOMPLIANCE [None]
